FAERS Safety Report 5810596-0 (Version None)
Quarter: 2008Q3

REPORT INFORMATION
  Report Type: 
  Country: None (occurrence: None)
  Receive Date: 20080715
  Receipt Date: 20080702
  Transmission Date: 20090109
  Serious: Yes (Other)
  Sender: FDA-Public Use
  Company Number: US-SOLVAY-00208002969

PATIENT
  Age: 776 Month
  Sex: Male

DRUGS (6)
  1. AVAPRO [Concomitant]
     Indication: HYPERTENSION
     Dosage: DAILY DOSE:  UNKNOWN
     Route: 048
  2. ACEON [Suspect]
     Indication: HYPERTENSION
     Dosage: DAILY DOSE: 8 MILLIGRAM(S)
     Route: 048
  3. OMACOR [Concomitant]
     Indication: BLOOD TRIGLYCERIDES INCREASED
     Dosage: DAILY DOSE:  UNKNOWN
     Route: 048
  4. CRESTOR [Concomitant]
     Indication: BLOOD CHOLESTEROL INCREASED
     Dosage: DAILY DOSE:  UNKNOWN
     Route: 048
  5. PENTASA [Concomitant]
     Indication: CROHN'S DISEASE
     Dosage: DAILY DOSE:  UNKNOWN
     Route: 048
  6. HYDROCHLOROTHIAZIDE [Concomitant]
     Indication: FLUID RETENTION
     Dosage: DAILY DOSE:  UNKNOWN
     Route: 048

REACTIONS (2)
  - ORAL NEOPLASM [None]
  - RENAL NEOPLASM [None]
